FAERS Safety Report 11928074 (Version 1)
Quarter: 2016Q1

REPORT INFORMATION
  Report Type: Spontaneous
  Country: US (occurrence: US)
  Receive Date: 20160119
  Receipt Date: 20160119
  Transmission Date: 20160526
  Serious: No
  Sender: FDA-Public Use
  Company Number: US-ENDO PHARMACEUTICALS INC.-2015-000328

PATIENT
  Sex: Female

DRUGS (4)
  1. RISPERIDONE TABLETS [Suspect]
     Active Substance: RISPERIDONE
     Indication: SCHIZOPHRENIA
     Route: 048
  2. RISPERIDONE TABLETS [Suspect]
     Active Substance: RISPERIDONE
     Route: 048
     Dates: start: 2007
  3. RISPERIDONE TABLETS [Suspect]
     Active Substance: RISPERIDONE
     Route: 048
  4. RISPERIDONE TABLETS [Suspect]
     Active Substance: RISPERIDONE
     Route: 048

REACTIONS (1)
  - Schizophrenia [Recovered/Resolved]

NARRATIVE: CASE EVENT DATE: 201410
